FAERS Safety Report 8243107-3 (Version None)
Quarter: 2012Q1

REPORT INFORMATION
  Report Type: 
  Country: None (occurrence: None)
  Receive Date: 20120329
  Receipt Date: 20111004
  Transmission Date: 20120608
  Serious: No
  Sender: FDA-Public Use
  Company Number: US-MYLANLABS-2011S1020857

PATIENT
  Age: 95 Year
  Sex: Female

DRUGS (2)
  1. ASPIRIN [Concomitant]
  2. ALBUTEROL SULATE [Suspect]
     Indication: BRONCHITIS
     Route: 055

REACTIONS (1)
  - TOOTH REPAIR [None]
